FAERS Safety Report 10100671 (Version 1)
Quarter: 2014Q2

REPORT INFORMATION
  Report Type: Spontaneous
  Country: CH (occurrence: CH)
  Receive Date: 20140423
  Receipt Date: 20140423
  Transmission Date: 20141212
  Serious: Yes (Hospitalization)
  Sender: FDA-Public Use
  Company Number: CH-ASTRAZENECA-2014SE26457

PATIENT
  Age: 58 Year
  Sex: Male

DRUGS (23)
  1. MERONEM [Suspect]
     Indication: PNEUMONIA
     Route: 042
     Dates: start: 20140307
  2. SYNAGIS [Suspect]
     Indication: RESPIRATORY SYNCYTIAL VIRUS TEST POSITIVE
     Dosage: DUE TO ADMINISTRATION PROBLEMS THE PATIENT RECEIVED ONLY 600 MG INSTEAD OF 1.2 G
     Route: 030
     Dates: start: 20140308, end: 20140308
  3. MORPHINE [Suspect]
     Route: 042
     Dates: start: 20140307, end: 20140310
  4. VFEND [Suspect]
     Indication: PNEUMONIA FUNGAL
     Route: 048
     Dates: start: 20140225, end: 20140226
  5. VFEND [Suspect]
     Indication: PNEUMONIA FUNGAL
     Route: 048
     Dates: start: 20140227, end: 20140311
  6. COPEGUS [Suspect]
     Route: 048
     Dates: start: 20140226
  7. COPEGUS [Suspect]
     Route: 048
     Dates: end: 20140307
  8. PROGRAF [Suspect]
     Indication: PROPHYLAXIS AGAINST TRANSPLANT REJECTION
     Route: 048
  9. PROGRAF [Suspect]
     Indication: PROPHYLAXIS AGAINST TRANSPLANT REJECTION
     Route: 048
     Dates: start: 20140307
  10. PREDNISONE [Suspect]
     Route: 048
  11. LYRICA [Suspect]
     Route: 048
     Dates: end: 20140307
  12. TRAMAL [Suspect]
     Route: 065
     Dates: end: 20140307
  13. SERESTA [Suspect]
     Route: 048
  14. TEMESTA [Suspect]
     Route: 048
     Dates: start: 20140221, end: 20140309
  15. CELLCEPT [Concomitant]
     Route: 048
     Dates: end: 20140222
  16. CELLCEPT [Concomitant]
     Route: 048
  17. LISITRIL [Concomitant]
     Route: 048
     Dates: end: 20140307
  18. AMLODIPINE [Concomitant]
     Route: 048
  19. ASPIRINE [Concomitant]
     Route: 048
  20. JANUMET [Concomitant]
     Route: 048
     Dates: end: 20140307
  21. INSULIN [Concomitant]
     Route: 058
  22. PANTOZOL [Concomitant]
     Route: 048
     Dates: end: 20140307
  23. ESOMEPRAZOLE [Concomitant]
     Route: 048
     Dates: end: 20140307

REACTIONS (6)
  - Prescribed overdose [Unknown]
  - Confusional state [Recovering/Resolving]
  - Withdrawal syndrome [Recovering/Resolving]
  - Underdose [Recovered/Resolved]
  - Incorrect dose administered [Recovered/Resolved]
  - Off label use [Unknown]
